FAERS Safety Report 6218898-3 (Version None)
Quarter: 2009Q2

REPORT INFORMATION
  Report Type: 
  Country: None (occurrence: None)
  Receive Date: 20090608
  Receipt Date: 20090526
  Transmission Date: 20091009
  Serious: Yes (Other)
  Sender: FDA-Public Use
  Company Number: GB-MYLANLABS-2008S1007040

PATIENT
  Age: 60 Year
  Sex: Female

DRUGS (6)
  1. BACLOFEN [Suspect]
     Indication: TRIGEMINAL NEURALGIA
     Dates: start: 20080331, end: 20080418
  2. BACLOFEN [Suspect]
  3. BACLOFEN [Suspect]
  4. TEGRETOL [Suspect]
     Indication: DRUG USE FOR UNKNOWN INDICATION
  5. VALIUM [Concomitant]
  6. RANITIDINE [Concomitant]
     Indication: ABDOMINAL PAIN

REACTIONS (9)
  - CHROMATURIA [None]
  - CLUSTER HEADACHE [None]
  - DYSGEUSIA [None]
  - FATIGUE [None]
  - MALAISE [None]
  - MYALGIA [None]
  - PAIN [None]
  - TREMOR [None]
  - WEIGHT DECREASED [None]
